FAERS Safety Report 7507638-3 (Version None)
Quarter: 2011Q2

REPORT INFORMATION
  Report Type: 
  Country: None (occurrence: None)
  Receive Date: 20110527
  Receipt Date: 20110519
  Transmission Date: 20111010
  Serious: Yes (Other)
  Sender: FDA-Public Use
  Company Number: US-BRISTOL-MYERS SQUIBB COMPANY-15760754

PATIENT

DRUGS (1)
  1. ORENCIA [Suspect]

REACTIONS (2)
  - OPTIC NEUROPATHY [None]
  - OPTIC NEURITIS [None]
